FAERS Safety Report 4870981-0 (Version None)
Quarter: 2005Q4

REPORT INFORMATION
  Report Type: 
  Country: None (occurrence: None)
  Receive Date: 20051115
  Receipt Date: 20050824
  Transmission Date: 20060501
  Serious: Yes (Other)
  Sender: FDA-Public Use
  Company Number: 405861

PATIENT
  Age: 59 Year
  Sex: Male
  Weight: 79.4 kg

DRUGS (2)
  1. PEGASYS [Suspect]
     Indication: HEPATITIS C
     Dosage: 180 MCG 1 PER WEEK OTHER
     Dates: start: 20050315, end: 20050508
  2. COPEGUS [Suspect]
     Indication: HEPATITIS C
     Dosage: 6 DOSE FORM DAILY ORAL
     Route: 048
     Dates: start: 20050315, end: 20050508

REACTIONS (4)
  - LACRIMATION INCREASED [None]
  - PLATELET COUNT DECREASED [None]
  - PRURITUS [None]
  - RASH [None]
